FAERS Safety Report 7385702-X (Version None)
Quarter: 2011Q1

REPORT INFORMATION
  Report Type: 
  Country: None (occurrence: None)
  Receive Date: 20110322
  Receipt Date: 20110308
  Transmission Date: 20110831
  Serious: Yes (Other)
  Sender: FDA-Public Use
  Company Number: 2011SP010892

PATIENT
  Age: 9 Year

DRUGS (2)
  1. AMPHOTERCIN [Concomitant]
  2. POSANOL (POSACONAZOLE /01762801/1 [Suspect]
     Indication: ZYGOMYCOSIS
     Dosage: 400 MG BID 200 MG BID

REACTIONS (1)
  - LIVER OPERATION [None]
